FAERS Safety Report 6105202-4 (Version None)
Quarter: 2009Q1

REPORT INFORMATION
  Report Type: 
  Country: None (occurrence: None)
  Receive Date: 20090304
  Receipt Date: 20090304
  Transmission Date: 20090719
  Serious: No
  Sender: FDA-Public Use
  Company Number: None

PATIENT
  Sex: Male
  Weight: 82.73 kg

DRUGS (1)
  1. TAXOTERE [Suspect]
     Dosage: 153 MG

REACTIONS (1)
  - NEUTROPENIA [None]
